FAERS Safety Report 8006933-1 (Version None)
Quarter: 2011Q4

REPORT INFORMATION
  Report Type: 
  Country: None (occurrence: None)
  Receive Date: 20111227
  Receipt Date: 20111220
  Transmission Date: 20120403
  Serious: Yes (Hospitalization)
  Sender: FDA-Public Use
  Company Number: DE-JNJFOC-20111000212

PATIENT
  Sex: Female

DRUGS (6)
  1. SIMAVASTATIN [Concomitant]
     Route: 065
  2. MOVIPREP [Concomitant]
     Route: 065
  3. PALEXIA RETARD [Suspect]
     Route: 048
     Dates: start: 20110901, end: 20110901
  4. PALEXIA RETARD [Suspect]
     Indication: PRODUCT USED FOR UNKNOWN INDICATION
     Route: 048
     Dates: start: 20110829, end: 20110908
  5. INSULIN [Concomitant]
     Route: 065
  6. DICLO-DIVIDO [Concomitant]
     Route: 065

REACTIONS (5)
  - ABDOMINAL PAIN UPPER [None]
  - ILEUS [None]
  - ABDOMINAL PAIN [None]
  - CONSTIPATION [None]
  - FAECALOMA [None]
